FAERS Safety Report 9348144 (Version 1)
Quarter: 2013Q2

REPORT INFORMATION
  Report Type: Spontaneous
  Country: US (occurrence: None)
  Receive Date: 20130612
  Receipt Date: 20130612
  Transmission Date: 20140414
  Serious: Yes (Hospitalization)
  Sender: FDA-Public Use
  Company Number: None

PATIENT
  Age: 61 Year
  Sex: Female
  Weight: 98.43 kg

DRUGS (1)
  1. ETOPOSIDE [Suspect]
     Dosage: PT. RECIEVED 1 OES OF ETOPOSIDE ON 05/20/2013.
     Dates: start: 20130520

REACTIONS (8)
  - Pyrexia [None]
  - Ear pain [None]
  - Stomatitis [None]
  - Oropharyngeal pain [None]
  - Cough [None]
  - Pallor [None]
  - Wheezing [None]
  - Dyspnoea [None]
